FAERS Safety Report 6677421-X (Version None)
Quarter: 2010Q2

REPORT INFORMATION
  Report Type: 
  Country: None (occurrence: None)
  Receive Date: 20100412
  Receipt Date: 20100203
  Transmission Date: 20101027
  Serious: No
  Sender: FDA-Public Use
  Company Number: US-ALEXION-A201000131

PATIENT
  Sex: Female

DRUGS (16)
  1. SOLIRIS [Suspect]
     Indication: PAROXYSMAL NOCTURNAL HAEMOGLOBINURIA
     Dosage: 600 MG, UNK
     Route: 042
     Dates: start: 20100128
  2. PREDNISOLONE [Concomitant]
     Dosage: UNK
  3. PLAQUENIL [Concomitant]
     Dosage: UNK
  4. METHOTREXATE [Concomitant]
     Dosage: UNK
  5. FOLIC ACID [Concomitant]
     Dosage: UNK
  6. LEVCORODAN [Concomitant]
     Dosage: UNK
  7. EFFEXOR XR [Concomitant]
     Dosage: UNK
  8. TRAZODONE [Concomitant]
     Dosage: UNK
  9. COLACE [Concomitant]
     Dosage: UNK
  10. METAMUCIL                          /00091301/ [Concomitant]
     Dosage: UNK
  11. ULTRO [Concomitant]
     Dosage: UNK
  12. TYLENOL (CAPLET) [Concomitant]
     Dosage: UNK
  13. POTASSIUM [Concomitant]
     Dosage: UNK
  14. CALTRATE                           /00108001/ [Concomitant]
     Dosage: UNK
  15. BONIVA [Concomitant]
     Dosage: UNK
  16. ZIAC                               /01166101/ [Concomitant]
     Dosage: UNK

REACTIONS (1)
  - OEDEMA [None]
